FAERS Safety Report 15343144 (Version 1)
Quarter: 2018Q3

REPORT INFORMATION
  Report Type: Spontaneous
  Country: NL (occurrence: NL)
  Receive Date: 20180903
  Receipt Date: 20180903
  Transmission Date: 20181010
  Serious: Yes (Other)
  Sender: FDA-Public Use
  Company Number: NL-IPSEN BIOPHARMACEUTICALS, INC.-2018-12642

PATIENT
  Age: 47 Year
  Sex: Female

DRUGS (3)
  1. AZZALURE [Suspect]
     Active Substance: BOTULINUM TOXIN TYPE A
     Indication: SKIN WRINKLING
  2. AZZALURE [Suspect]
     Active Substance: BOTULINUM TOXIN TYPE A
     Indication: OFF LABEL USE
  3. AZZALURE [Suspect]
     Active Substance: BOTULINUM TOXIN TYPE A
     Indication: SKIN COSMETIC PROCEDURE
     Dosage: NOT REPORTED
     Route: 065
     Dates: start: 2017, end: 2017

REACTIONS (12)
  - Hyperhidrosis [Not Recovered/Not Resolved]
  - Apathy [Unknown]
  - Hypersensitivity [Unknown]
  - Tremor [Not Recovered/Not Resolved]
  - Off label use [Unknown]
  - White matter lesion [Unknown]
  - Amnesia [Unknown]
  - Sleep disorder [Not Recovered/Not Resolved]
  - Skin disorder [Unknown]
  - Palpitations [Not Recovered/Not Resolved]
  - Skin mass [Unknown]
  - Headache [Not Recovered/Not Resolved]

NARRATIVE: CASE EVENT DATE: 2017
